FAERS Safety Report 7602876-3 (Version None)
Quarter: 2011Q3

REPORT INFORMATION
  Report Type: 
  Country: None (occurrence: None)
  Receive Date: 20110712
  Receipt Date: 20110629
  Transmission Date: 20111222
  Serious: Yes (Other)
  Sender: FDA-Public Use
  Company Number: US-JNJFOC-20110703193

PATIENT
  Age: 92 Year
  Sex: Female

DRUGS (2)
  1. EXTRA STRENGTH TYLENOL [Suspect]
     Indication: PAIN
     Dosage: 500MG-1000MG, AS NECESSARY
     Route: 048
  2. EXTRA STRENGTH TYLENOL [Suspect]
     Route: 048

REACTIONS (4)
  - VOMITING [None]
  - LOSS OF CONSCIOUSNESS [None]
  - DIARRHOEA [None]
  - PRODUCT QUALITY ISSUE [None]
